FAERS Safety Report 4655064-7 (Version None)
Quarter: 2005Q2

REPORT INFORMATION
  Report Type: 
  Country: None (occurrence: None)
  Receive Date: 20050504
  Receipt Date: 20050418
  Transmission Date: 20051028
  Serious: Yes (Hospitalization, Other)
  Sender: FDA-Public Use
  Company Number: A-US2005-09510

PATIENT
  Age: 66 Year
  Sex: Female
  Weight: 65.3 kg

DRUGS (1)
  1. TRACLEER [Suspect]
     Indication: PULMONARY HYPERTENSION
     Dosage: ORAL
     Route: 048
     Dates: start: 20040101, end: 20041107

REACTIONS (24)
  - ALPHA 1 FOETOPROTEIN INCREASED [None]
  - ANTI-PLATELET ANTIBODY POSITIVE [None]
  - ASCITES [None]
  - AUTOIMMUNE HEPATITIS [None]
  - COMPLEMENT FACTOR C3 DECREASED [None]
  - COMPLEMENT FACTOR C4 DECREASED [None]
  - DIARRHOEA [None]
  - GAMMOPATHY [None]
  - HAEMATOCRIT DECREASED [None]
  - HAEMOGLOBIN DECREASED [None]
  - HEPATIC CIRRHOSIS [None]
  - HEPATIC FAILURE [None]
  - HEPATIC MASS [None]
  - HEPATITIS ACUTE [None]
  - KLEBSIELLA SEPSIS [None]
  - LIVER DISORDER [None]
  - MALNUTRITION [None]
  - PERITONITIS BACTERIAL [None]
  - PLATELET COUNT DECREASED [None]
  - RED BLOOD CELL SEDIMENTATION RATE INCREASED [None]
  - RENAL FAILURE ACUTE [None]
  - RENAL IMPAIRMENT [None]
  - RENAL TUBULAR NECROSIS [None]
  - URINE OUTPUT DECREASED [None]
